FAERS Safety Report 9628843 (Version 1)
Quarter: 2013Q4

REPORT INFORMATION
  Report Type: Spontaneous
  Country: US (occurrence: US)
  Receive Date: 20131017
  Receipt Date: 20131017
  Transmission Date: 20140711
  Serious: No
  Sender: FDA-Public Use
  Company Number: US-BAYER-2013-120277

PATIENT
  Age: 76 Year
  Sex: Female

DRUGS (2)
  1. MAGNEVIST [Suspect]
     Indication: NUCLEAR MAGNETIC RESONANCE IMAGING BRAIN
     Dosage: 13 ML, ONCE
  2. MAGNEVIST [Suspect]
     Indication: MENTAL STATUS CHANGES

REACTIONS (3)
  - Injection site swelling [None]
  - Injection site induration [None]
  - Injection site erythema [None]
